FAERS Safety Report 23651944 (Version 12)
Quarter: 2025Q1

REPORT INFORMATION
  Report Type: Report from Study
  Country: CN (occurrence: CN)
  Receive Date: 20240320
  Receipt Date: 20250114
  Transmission Date: 20250408
  Serious: Yes (Hospitalization)
  Sender: ABBVIE
  Company Number: CN-ABBVIE-5682239

PATIENT
  Age: 61 Year
  Sex: Female
  Weight: 53 kg

DRUGS (8)
  1. HUMIRA [Suspect]
     Active Substance: ADALIMUMAB
     Indication: Crohn^s disease
     Route: 058
     Dates: start: 20230810, end: 20230810
  2. HUMIRA [Suspect]
     Active Substance: ADALIMUMAB
     Route: 058
     Dates: start: 20230824, end: 20230824
  3. HUMIRA [Suspect]
     Active Substance: ADALIMUMAB
     Dosage: FORM STRENGTH: 40 MILLIGRAM
     Route: 058
     Dates: start: 20230825, end: 20240207
  4. HUMIRA [Suspect]
     Active Substance: ADALIMUMAB
     Dosage: FORM STRENGTH: 40 MILLIGRAM
     Route: 058
     Dates: start: 20240208, end: 20240720
  5. AZATHIOPRINE [Concomitant]
     Active Substance: AZATHIOPRINE
     Indication: Crohn^s disease
     Route: 048
     Dates: start: 20240315, end: 20240317
  6. DIMETHICONE [Concomitant]
     Active Substance: DIMETHICONE
     Indication: Premedication
     Route: 048
     Dates: start: 20240311, end: 20240311
  7. IOHEXOL [Concomitant]
     Active Substance: IOHEXOL
     Indication: Premedication
     Route: 042
     Dates: start: 20240310, end: 20240310
  8. Polyethylene Glycol Electrolytes [Concomitant]
     Indication: Bowel preparation
     Route: 048
     Dates: start: 20240311, end: 20240311

REACTIONS (7)
  - Haematochezia [Recovered/Resolved]
  - Hepatic steatosis [Not Recovered/Not Resolved]
  - Abdominal pain [Recovered/Resolved]
  - Diarrhoea [Recovered/Resolved]
  - Vitamin D deficiency [Not Recovered/Not Resolved]
  - Crohn^s disease [Recovered/Resolved]
  - Ulcer [Not Recovered/Not Resolved]

NARRATIVE: CASE EVENT DATE: 20231101
